FAERS Safety Report 5520705-9 (Version None)
Quarter: 2007Q4

REPORT INFORMATION
  Report Type: 
  Country: None (occurrence: None)
  Receive Date: 20071119
  Receipt Date: 20071105
  Transmission Date: 20080405
  Serious: Yes (Other)
  Sender: FDA-Public Use
  Company Number: GB-PFIZER INC-2007094501

PATIENT
  Age: 32 Year
  Sex: Female
  Weight: 68 kg

DRUGS (2)
  1. CHAMPIX [Suspect]
     Indication: SMOKING CESSATION THERAPY
     Route: 048
     Dates: start: 20071002, end: 20071008
  2. CITALOPRAM [Concomitant]
     Indication: ANXIETY
     Route: 048
     Dates: start: 20040624

REACTIONS (3)
  - ANXIETY [None]
  - DEPRESSED MOOD [None]
  - INITIAL INSOMNIA [None]
